FAERS Safety Report 8601468-7 (Version None)
Quarter: 2012Q3

REPORT INFORMATION
  Report Type: 
  Country: None (occurrence: None)
  Receive Date: 20120817
  Receipt Date: 20110901
  Transmission Date: 20120928
  Serious: Yes (Hospitalization)
  Sender: FDA-Public Use
  Company Number: US-BRISTOL-MYERS SQUIBB COMPANY-15994676

PATIENT
  Sex: Female

DRUGS (2)
  1. ASPIRIN [Suspect]
  2. SPRYCEL [Suspect]

REACTIONS (1)
  - GASTROINTESTINAL HAEMORRHAGE [None]
